FAERS Safety Report 4990996-1 (Version None)
Quarter: 2006Q2

REPORT INFORMATION
  Report Type: 
  Country: None (occurrence: None)
  Receive Date: 20060503
  Receipt Date: 20050524
  Transmission Date: 20061013
  Serious: Yes (Hospitalization, Disabling, Other)
  Sender: FDA-Public Use
  Company Number: US-MERCK-0505USA02928

PATIENT
  Age: 58 Year
  Sex: Female
  Weight: 107 kg

DRUGS (1)
  1. VIOXX [Suspect]
     Indication: OSTEOARTHRITIS
     Route: 048
     Dates: start: 20000101, end: 20041005

REACTIONS (15)
  - ABDOMINAL PAIN [None]
  - ANAEMIA [None]
  - APHASIA [None]
  - CEREBROVASCULAR ACCIDENT [None]
  - CHEST PAIN [None]
  - CORONARY ARTERY OCCLUSION [None]
  - DIARRHOEA [None]
  - DIZZINESS [None]
  - GASTRITIS [None]
  - HERNIA [None]
  - LACTOSE INTOLERANCE [None]
  - OCCULT BLOOD POSITIVE [None]
  - PANIC ATTACK [None]
  - TENDONITIS [None]
  - TRANSIENT ISCHAEMIC ATTACK [None]
